FAERS Safety Report 8419216-2 (Version None)
Quarter: 2012Q2

REPORT INFORMATION
  Report Type: 
  Country: None (occurrence: None)
  Receive Date: 20120601
  Receipt Date: 20120523
  Transmission Date: 20120825
  Serious: Yes (Hospitalization, Other)
  Sender: FDA-Public Use
  Company Number: ADR-2012-00933

PATIENT
  Sex: Female

DRUGS (2)
  1. LIORESAL [Suspect]
     Indication: MUSCLE SPASTICITY
     Dosage: 999.7 MCG/DAY
     Route: 037
  2. LIORESAL [Suspect]
     Indication: STIFF PERSON SYNDROME
     Dosage: 999.7 MCG/DAY
     Route: 037

REACTIONS (6)
  - FALL [None]
  - ALCOHOL ABUSE [None]
  - MEDICAL DEVICE COMPLICATION [None]
  - DEVICE DAMAGE [None]
  - MUSCLE SPASTICITY [None]
  - IMPLANT SITE EFFUSION [None]
